FAERS Safety Report 6343251-1 (Version None)
Quarter: 2009Q3

REPORT INFORMATION
  Report Type: 
  Country: None (occurrence: None)
  Receive Date: 20090908
  Receipt Date: 20090508
  Transmission Date: 20100115
  Serious: Yes (Hospitalization)
  Sender: FDA-Public Use
  Company Number: AU-CELGENEUS-008-C5013-07081727

PATIENT
  Sex: Male

DRUGS (3)
  1. CC-5013 [Suspect]
     Indication: MULTIPLE MYELOMA
     Route: 048
     Dates: start: 20070616, end: 20070826
  2. CC-5013 [Suspect]
     Route: 048
     Dates: start: 20070914
  3. DEXAMETHASONE [Suspect]
     Indication: MULTIPLE MYELOMA
     Route: 048
     Dates: start: 20070616

REACTIONS (3)
  - NEUTROPENIA [None]
  - NON-CARDIAC CHEST PAIN [None]
  - PNEUMONIA [None]
